FAERS Safety Report 9782235 (Version 1)
Quarter: 2013Q4

REPORT INFORMATION
  Report Type: Spontaneous
  Country: IN (occurrence: IN)
  Receive Date: 20131226
  Receipt Date: 20131226
  Transmission Date: 20140711
  Serious: Yes (Hospitalization, Other)
  Sender: FDA-Public Use
  Company Number: IN-SUN PHARMACEUTICAL INDUSTRIES LTD-2013SUN05244

PATIENT
  Age: 30 Year
  Sex: Male

DRUGS (7)
  1. LITHIUM [Suspect]
     Indication: AGGRESSION
     Route: 065
  2. LITHIUM [Suspect]
     Indication: MANIA
  3. OXCARBAZEPINE TABLETS, 150 MG [Concomitant]
     Indication: PRODUCT USED FOR UNKNOWN INDICATION
     Dosage: 900 MG, UNK
     Route: 065
  4. OLANZAPINE [Concomitant]
     Indication: PRODUCT USED FOR UNKNOWN INDICATION
     Dosage: 20 MG, OD
     Route: 065
  5. DIVALPROATE SODIUM [Concomitant]
     Dosage: 1500 MG, UNK
  6. HALOPERIDOL [Concomitant]
     Dosage: 30 MG, OD
  7. HALOPERIDOL [Concomitant]
     Dosage: 20 MG, OD

REACTIONS (2)
  - Delirium [Recovering/Resolving]
  - Drug interaction [Recovering/Resolving]
